FAERS Safety Report 8599541-5 (Version None)
Quarter: 2012Q3

REPORT INFORMATION
  Report Type: 
  Country: None (occurrence: None)
  Receive Date: 20120816
  Receipt Date: 20120814
  Transmission Date: 20120928
  Serious: Yes (Death, Hospitalization, Other)
  Sender: FDA-Public Use
  Company Number: US-ELI_LILLY_AND_COMPANY-US201208004487

PATIENT
  Age: 61 Year
  Sex: Female

DRUGS (9)
  1. QUINIDINE GLUCONATE [Suspect]
     Indication: PLASMODIUM FALCIPARUM INFECTION
     Dosage: 650 MG, OTHER
     Route: 042
  2. SEVELAMER HYDROCHLORIDE [Concomitant]
     Dosage: 800 MG, EVERY 8 HRS
     Route: 048
  3. CEFTAZIDIME PENTAHYDRATE [Concomitant]
     Dosage: 1 G, BID
     Route: 042
  4. CLINDAMYCIN [Concomitant]
     Dosage: 900 MG, EVERY 8 HRS
     Route: 042
  5. QUINIDINE GLUCONATE [Suspect]
     Dosage: 0.02 MG/KG, EVERY HOUR
     Route: 042
  6. SIMVASTATIN [Concomitant]
     Dosage: 40 MG, QD
     Route: 048
  7. VANCOMYCIN HCL [Concomitant]
     Dosage: 1 G, BID
     Route: 042
  8. ENOXAPARIN [Concomitant]
     Dosage: 40 MG, QD
     Route: 058
  9. ESOMEPRAZOLE [Concomitant]
     Dosage: 40 MG, QD
     Route: 042

REACTIONS (4)
  - ELECTROCARDIOGRAM QT PROLONGED [None]
  - SEPSIS [None]
  - MULTI-ORGAN FAILURE [None]
  - TORSADE DE POINTES [None]
